FAERS Safety Report 8373732-0 (Version None)
Quarter: 2012Q2

REPORT INFORMATION
  Report Type: 
  Country: None (occurrence: None)
  Receive Date: 20120521
  Receipt Date: 20120507
  Transmission Date: 20120825
  Serious: Yes (Hospitalization)
  Sender: FDA-Public Use
  Company Number: US-ROCHE-1066210

PATIENT
  Sex: Male
  Weight: 77.18 kg

DRUGS (8)
  1. ASPIRIN [Concomitant]
  2. HYDROCHLOROTHIAZIDE [Concomitant]
  3. LIPITOR [Concomitant]
  4. MICRONASE [Concomitant]
  5. ARIXTRA [Concomitant]
  6. RANIBIZUMAB [Suspect]
     Indication: RETINAL VEIN OCCLUSION
     Dosage: 0.5 MG OR 2 MG
     Route: 050
     Dates: start: 20101105
  7. PRINIVIL [Concomitant]
  8. NICODERM [Concomitant]

REACTIONS (1)
  - CEREBROVASCULAR ACCIDENT [None]
